FAERS Safety Report 17352034 (Version 2)
Quarter: 2020Q1

REPORT INFORMATION
  Report Type: Spontaneous
  Country: US (occurrence: US)
  Receive Date: 20200130
  Receipt Date: 20200216
  Transmission Date: 20200409
  Serious: Yes (Hospitalization)
  Sender: FDA-Public Use
  Company Number: US-TEVA-2020-US-1175469

PATIENT
  Age: 33 Year
  Sex: Female

DRUGS (2)
  1. AZITHROMYCIN ANHYDROUS. [Suspect]
     Active Substance: AZITHROMYCIN ANHYDROUS
     Indication: ANTIBIOTIC THERAPY
     Route: 065
  2. PREDNISONE. [Suspect]
     Active Substance: PREDNISONE
     Indication: INFECTION PROPHYLAXIS
     Route: 065

REACTIONS (5)
  - Metabolic alkalosis [Recovering/Resolving]
  - Respiratory alkalosis [Recovering/Resolving]
  - Hypoxia [Recovering/Resolving]
  - Candida pneumonia [Recovering/Resolving]
  - Lymphadenopathy mediastinal [Recovering/Resolving]
